FAERS Safety Report 8947206 (Version 3)
Quarter: 2013Q1

REPORT INFORMATION
  Report Type: Spontaneous
  Country: CO (occurrence: CO)
  Receive Date: 20121205
  Receipt Date: 20130212
  Transmission Date: 20140127
  Serious: Yes (Other)
  Sender: FDA-Public Use
  Company Number: CO-ROCHE-1163367

PATIENT
  Sex: Male
  Weight: 62 kg

DRUGS (5)
  1. LUCENTIS [Suspect]
     Indication: DIABETIC RETINAL OEDEMA
     Route: 050
     Dates: start: 20110615, end: 20121130
  2. INSULIN NPH [Concomitant]
     Dosage: 20 U-MORNING AND 15 U-EVENING
     Route: 065
  3. GLIBENCLAMIDE [Concomitant]
     Route: 065
  4. CALCIUM PHOSPHATE [Concomitant]
     Route: 065
  5. VITAMIN D3 [Concomitant]
     Dosage: UI
     Route: 065

REACTIONS (3)
  - Blood glucose abnormal [Recovered/Resolved]
  - Eye disorder [Unknown]
  - Myocardial infarction [Unknown]
